FAERS Safety Report 18043496 (Version 1)
Quarter: 2020Q3

REPORT INFORMATION
  Report Type: Spontaneous
  Country: US (occurrence: US)
  Receive Date: 20200720
  Receipt Date: 20200720
  Transmission Date: 20201103
  Serious: No
  Sender: FDA-Public Use
  Company Number: US-LUPIN PHARMACEUTICALS INC.-2019-08846

PATIENT
  Age: 67 Year
  Sex: Female
  Weight: 78.46 kg

DRUGS (3)
  1. GAVILYTE G [Suspect]
     Active Substance: POLYETHYLENE GLYCOL 3350\POTASSIUM CHLORIDE\SODIUM BICARBONATE\SODIUM CHLORIDE\SODIUM SULFATE ANHYDROUS
     Indication: CONSTIPATION
     Dosage: UNK UNK, PRN
     Route: 048
     Dates: start: 201909
  2. LINZESS [Concomitant]
     Active Substance: LINACLOTIDE
     Indication: CONSTIPATION
     Dosage: UNK
     Route: 048
  3. DULCOLAX [SODIUM PICOSULFATE] [Concomitant]
     Active Substance: SODIUM PICOSULFATE
     Indication: CONSTIPATION
     Dosage: UNK
     Route: 048

REACTIONS (2)
  - No adverse event [Unknown]
  - Off label use [Unknown]

NARRATIVE: CASE EVENT DATE: 201909
